FAERS Safety Report 9031793 (Version 1)
Quarter: 2013Q1

REPORT INFORMATION
  Report Type: Report from Study
  Country: ES (occurrence: ES)
  Receive Date: 20130124
  Receipt Date: 20130124
  Transmission Date: 20140127
  Serious: Yes (Death, Hospitalization)
  Sender: FDA-Public Use
  Company Number: ES-BAXTER-2013BAX002484

PATIENT
  Age: 58 Year
  Sex: Female
  Weight: 69 kg

DRUGS (3)
  1. GENOXAL [Suspect]
     Indication: HER-2 POSITIVE BREAST CANCER
     Route: 042
     Dates: start: 20121114
  2. FLUOROURACIL [Suspect]
     Indication: HER-2 POSITIVE BREAST CANCER
     Route: 042
     Dates: start: 20121114
  3. EPIRUBICIN [Suspect]
     Indication: HER-2 POSITIVE BREAST CANCER
     Route: 042
     Dates: start: 20121114

REACTIONS (1)
  - Pulmonary embolism [Fatal]
